FAERS Safety Report 5531340-0 (Version None)
Quarter: 2007Q4

REPORT INFORMATION
  Report Type: 
  Country: None (occurrence: None)
  Receive Date: 20071128
  Receipt Date: 20070710
  Transmission Date: 20080405
  Serious: Yes (Death)
  Sender: FDA-Public Use
  Company Number: GXKR2007GB09806

PATIENT
  Age: 28 Year
  Sex: Male

DRUGS (6)
  1. CLINDAMYCIN (NGX) (CLINDAMYCIN) UNKNOWN [Suspect]
     Indication: LUNG TRANSPLANT
  2. PIPERCALLIN+TAZOBACTAM (NGX) (PIPERACILLIN, TAZOBACTAM) UNKNOWN [Suspect]
  3. METRONIDAZOLE [Suspect]
  4. AZTREONAM (AZTREONAM) [Suspect]
     Indication: LUNG TRANSPLANT
  5. FLUCONAZOLE [Concomitant]
  6. CASPOFUNGIN (CASPOFUNGIN) [Concomitant]

REACTIONS (11)
  - CHOLELITHIASIS [None]
  - DIALYSIS [None]
  - HYPOTENSION [None]
  - INTESTINAL DILATATION [None]
  - MULTI-ORGAN FAILURE [None]
  - POST PROCEDURAL COMPLICATION [None]
  - POSTOPERATIVE RENAL FAILURE [None]
  - PSEUDOMEMBRANOUS COLITIS [None]
  - REFUSAL OF TREATMENT BY PATIENT [None]
  - REPERFUSION INJURY [None]
  - SEPSIS [None]
